FAERS Safety Report 17789160 (Version 3)
Quarter: 2020Q3

REPORT INFORMATION
  Report Type: Spontaneous
  Country: US (occurrence: US)
  Receive Date: 20200514
  Receipt Date: 20200810
  Transmission Date: 20201102
  Serious: No
  Sender: FDA-Public Use
  Company Number: US-009507513-2005USA002901

PATIENT
  Age: 26 Year
  Sex: Female
  Weight: 108.84 kg

DRUGS (1)
  1. NEXPLANON [Suspect]
     Active Substance: ETONOGESTREL
     Indication: CONTRACEPTION
     Dosage: 1 ROD, EVERY 3 YEARS, THIRD NEXPLANON, LEFT UPPER ARM
     Route: 058
     Dates: start: 20200219, end: 20200508

REACTIONS (3)
  - Device breakage [Recovered/Resolved]
  - Complication of device removal [Recovered/Resolved]
  - Metrorrhagia [Not Recovered/Not Resolved]

NARRATIVE: CASE EVENT DATE: 20200219
